FAERS Safety Report 12736079 (Version 1)
Quarter: 2016Q3

REPORT INFORMATION
  Report Type: Report from Study
  Country: FR (occurrence: FR)
  Receive Date: 20160913
  Receipt Date: 20160913
  Transmission Date: 20161109
  Serious: Yes (Death, Other)
  Sender: FDA-Public Use
  Company Number: FR-ROCHE-1825774

PATIENT

DRUGS (4)
  1. RITUXIMAB [Suspect]
     Active Substance: RITUXIMAB
     Indication: DIFFUSE LARGE B-CELL LYMPHOMA
     Dosage: ON DAY 1 OF EACH CYCLE
     Route: 042
  2. VINCRISTINE [Suspect]
     Active Substance: VINCRISTINE
     Indication: DIFFUSE LARGE B-CELL LYMPHOMA
     Dosage: ON DAY 1 OF EACH CYCLE
     Route: 065
  3. PREDNISONE. [Suspect]
     Active Substance: PREDNISONE
     Indication: DIFFUSE LARGE B-CELL LYMPHOMA
     Dosage: ON DAYS 1-5.
     Route: 065
  4. CYCLOPHOSPHAMIDE. [Suspect]
     Active Substance: CYCLOPHOSPHAMIDE
     Indication: DIFFUSE LARGE B-CELL LYMPHOMA
     Dosage: ON DAY 1 OF EACH CYCLE
     Route: 065

REACTIONS (21)
  - Constipation [Unknown]
  - Nausea [Unknown]
  - Infection [Fatal]
  - Neutropenia [Unknown]
  - Anaemia [Unknown]
  - Hypersensitivity [Unknown]
  - Pulmonary toxicity [Unknown]
  - Rash [Unknown]
  - Asthenia [Unknown]
  - Cardiotoxicity [Unknown]
  - Stomatitis [Unknown]
  - Nephropathy toxic [Unknown]
  - Toxicity to various agents [Unknown]
  - Peripheral sensory neuropathy [Unknown]
  - Diarrhoea [Unknown]
  - Febrile neutropenia [Unknown]
  - Vomiting [Unknown]
  - Peripheral motor neuropathy [Unknown]
  - Thrombocytopenia [Unknown]
  - Insomnia [Unknown]
  - Dizziness [Unknown]
